FAERS Safety Report 12872964 (Version 1)
Quarter: 2016Q4

REPORT INFORMATION
  Report Type: Spontaneous
  Country: US (occurrence: US)
  Receive Date: 20161021
  Receipt Date: 20161021
  Transmission Date: 20170207
  Serious: No
  Sender: FDA-Public Use
  Company Number: US-009507513-1610USA008775

PATIENT
  Sex: Female

DRUGS (1)
  1. NUVARING [Suspect]
     Active Substance: ETHINYL ESTRADIOL\ETONOGESTREL
     Dosage: .015/.12MG/ IN PLACE FOR 3 WEEKS IN ONE FREE WEEK; STRENGTH REPORTED AS 0.015/0.12 (UNITS NOT PROVID
     Route: 067
     Dates: start: 201601

REACTIONS (3)
  - No adverse event [Unknown]
  - Drug dose omission [Unknown]
  - Device expulsion [Unknown]

NARRATIVE: CASE EVENT DATE: 2016
